FAERS Safety Report 17166451 (Version 9)
Quarter: 2020Q2

REPORT INFORMATION
  Report Type: Spontaneous
  Country: PT (occurrence: PT)
  Receive Date: 20191217
  Receipt Date: 20200624
  Transmission Date: 20200713
  Serious: Yes (Life-Threatening, Hospitalization, Disabling, Other)
  Sender: FDA-Public Use
  Company Number: NVSC2019PT057930

PATIENT
  Age: 58 Year
  Sex: Male

DRUGS (4)
  1. ATORVASTATIN [Suspect]
     Active Substance: ATORVASTATIN
     Indication: DYSLIPIDAEMIA
     Dosage: 10 MG, QD
     Route: 048
  2. HYDROCHLOROTHIAZIDE W/OLMESARTAN [Suspect]
     Active Substance: HYDROCHLOROTHIAZIDE\OLMESARTAN MEDOXOMIL
     Indication: HYPERTENSION
     Dosage: 12.5 MG/20 MG
     Route: 065
  3. LEVOTHYROXINE. [Concomitant]
     Active Substance: LEVOTHYROXINE
     Indication: HYPOTHYROIDISM
     Dosage: 100 UG, QD
     Route: 048
  4. HYDROCHLOROTHIAZIDE W/OLMESARTAN [Suspect]
     Active Substance: HYDROCHLOROTHIAZIDE\OLMESARTAN MEDOXOMIL
     Indication: ESSENTIAL HYPERTENSION
     Dosage: 1 DF, QD
     Route: 048

REACTIONS (8)
  - Hyporeflexia [Recovering/Resolving]
  - Myalgia [Recovering/Resolving]
  - Muscle atrophy [Recovering/Resolving]
  - Immune-mediated myositis [Recovering/Resolving]
  - Weight decreased [Recovered/Resolved]
  - Necrotising myositis [Recovering/Resolving]
  - Muscular weakness [Recovered/Resolved]
  - Gait disturbance [Recovering/Resolving]
